FAERS Safety Report 9372089 (Version 1)
Quarter: 2013Q2

REPORT INFORMATION
  Report Type: Spontaneous
  Country: AT (occurrence: AT)
  Receive Date: 20130627
  Receipt Date: 20130627
  Transmission Date: 20140414
  Serious: Yes (Hospitalization)
  Sender: FDA-Public Use
  Company Number: AT-BAYER-2013-076967

PATIENT
  Age: 64 Year
  Sex: Male

DRUGS (5)
  1. CIPROFLOXACIN [Suspect]
     Indication: PNEUMONIA ESCHERICHIA
     Dosage: 400 MG, BID
  2. CIPROFLOXACIN [Suspect]
     Indication: PNEUMONIA ESCHERICHIA
     Dosage: 400 MG, TID
  3. ATORVASTATIN [Suspect]
     Dosage: 80 MG
  4. TIGECYCLINE [Concomitant]
     Dosage: 100 MG, BID
  5. FOSFOMYCIN [Concomitant]
     Dosage: 4 G, TID

REACTIONS (2)
  - Rhabdomyolysis [Recovered/Resolved]
  - Renal impairment [Recovered/Resolved]
